FAERS Safety Report 15347111 (Version 1)
Quarter: 2018Q3

REPORT INFORMATION
  Report Type: Spontaneous
  Country: US (occurrence: US)
  Receive Date: 20180904
  Receipt Date: 20180904
  Transmission Date: 20181010
  Serious: Yes (Death)
  Sender: FDA-Public Use
  Company Number: US-BAYER-2018-160184

PATIENT
  Age: 77 Year
  Sex: Female

DRUGS (3)
  1. ACETYLSALICYLIC ACID({=100 MG) [Suspect]
     Active Substance: ASPIRIN
     Indication: ANTICOAGULANT THERAPY
     Dosage: UNK
  2. HEPARIN [Interacting]
     Active Substance: HEPARIN SODIUM
     Indication: ANTICOAGULANT THERAPY
     Dosage: UNK
     Route: 042
  3. NITROGLYCERINE [Suspect]
     Active Substance: NITROGLYCERIN
     Dosage: UNK

REACTIONS (4)
  - Pericardial effusion [Fatal]
  - Cardiac arrest [Fatal]
  - Myocardial haemorrhage [Fatal]
  - Labelled drug-drug interaction medication error [Fatal]
